FAERS Safety Report 4597417-1 (Version None)
Quarter: 2005Q1

REPORT INFORMATION
  Report Type: 
  Country: None (occurrence: None)
  Receive Date: 20050303
  Receipt Date: 20050221
  Transmission Date: 20050727
  Serious: Yes (Life-Threatening)
  Sender: FDA-Public Use
  Company Number: US-ABBOTT-05P-163-0291538-00

PATIENT
  Age: 29 Year
  Sex: Male

DRUGS (12)
  1. NORVIR [Suspect]
     Indication: HIV INFECTION
     Route: 048
  2. METHYLENEDIOXYMETHAMPHETAMINE [Interacting]
     Indication: DRUG USE FOR UNKNOWN INDICATION
  3. [GAMMA]-HYDROXYBUTYRATE [Interacting]
     Indication: DRUG USE FOR UNKNOWN INDICATION
  4. [GAMMA]-HYDROXYBUTYRATE [Interacting]
  5. SAQUINAVIR [Interacting]
     Indication: HIV INFECTION
     Route: 048
  6. CANNABIS [Concomitant]
     Indication: DRUG USE FOR UNKNOWN INDICATION
     Route: 055
  7. PROCHLORPERAZINE MALEATE [Concomitant]
     Indication: NAUSEA
  8. GRANULOCYTE COLONY STIMULATING FACTOR [Concomitant]
     Indication: DRUG USE FOR UNKNOWN INDICATION
  9. AZITHROMYCIN [Concomitant]
     Indication: DRUG USE FOR UNKNOWN INDICATION
  10. ACYCLOVIR [Concomitant]
     Indication: DRUG USE FOR UNKNOWN INDICATION
  11. PENTAMIDINE [Concomitant]
     Indication: DRUG USE FOR UNKNOWN INDICATION
  12. MULTI-VITAMINS [Concomitant]
     Indication: DRUG USE FOR UNKNOWN INDICATION

REACTIONS (7)
  - BLOOD PRESSURE INCREASED [None]
  - BODY TEMPERATURE DECREASED [None]
  - CLONIC CONVULSION [None]
  - DRUG INTERACTION [None]
  - HEART RATE DECREASED [None]
  - HEART RATE INCREASED [None]
  - HYPOVENTILATION [None]
